FAERS Safety Report 7267791-6 (Version None)
Quarter: 2011Q1

REPORT INFORMATION
  Report Type: 
  Country: None (occurrence: None)
  Receive Date: 20110201
  Receipt Date: 20110121
  Transmission Date: 20110831
  Serious: Yes (Hospitalization)
  Sender: FDA-Public Use
  Company Number: A0908889A

PATIENT
  Age: 61 Year
  Sex: Female
  Weight: 75.4 kg

DRUGS (5)
  1. CARBOPLATIN [Suspect]
     Indication: BREAST CANCER
     Route: 042
     Dates: start: 20101111
  2. PIMECROLIMUS [Concomitant]
     Route: 061
  3. LAPATINIB [Suspect]
     Indication: BREAST CANCER
     Dosage: 750MG PER DAY
     Route: 048
     Dates: start: 20101111
  4. DOCETAXEL [Suspect]
     Indication: BREAST CANCER
     Dosage: 75MGM2 EVERY 3 WEEKS
     Route: 042
     Dates: start: 20101111
  5. PREDNISONE [Concomitant]
     Dosage: 40MG PER DAY
     Route: 048

REACTIONS (10)
  - DRUG ERUPTION [None]
  - PAIN [None]
  - INFECTION [None]
  - RETCHING [None]
  - DYSPHAGIA [None]
  - FATIGUE [None]
  - DYSPEPSIA [None]
  - EATING DISORDER [None]
  - ABDOMINAL PAIN [None]
  - NAUSEA [None]
